FAERS Safety Report 6181150-9 (Version None)
Quarter: 2009Q2

REPORT INFORMATION
  Report Type: 
  Country: None (occurrence: None)
  Receive Date: 20090501
  Receipt Date: 20090114
  Transmission Date: 20091009
  Serious: Yes (Other)
  Sender: FDA-Public Use
  Company Number: 000225

PATIENT

DRUGS (1)
  1. PARACETAMOL WITH CODEINE PHOSPHATE (CODEINE PHOSPHATE AND PARACETAMOL) [Suspect]
     Dosage: (8-12 TABLETS OF CODEINE 30 MG AND PARACETAMOL 500 MG IN COMBINATION DAILY ORAL)
     Route: 048

REACTIONS (4)
  - DEAFNESS BILATERAL [None]
  - DEAFNESS NEUROSENSORY [None]
  - GAMMA-GLUTAMYLTRANSFERASE INCREASED [None]
  - MEAN CELL VOLUME ABNORMAL [None]
